FAERS Safety Report 20018405 (Version 1)
Quarter: 2021Q4

REPORT INFORMATION
  Report Type: Spontaneous
  Country: ES (occurrence: ES)
  Receive Date: 20211101
  Receipt Date: 20211101
  Transmission Date: 20220303
  Serious: Yes (Hospitalization, Other)
  Sender: FDA-Public Use
  Company Number: ES-UCBSA-2021050277

PATIENT
  Age: 42 Year
  Sex: Female

DRUGS (4)
  1. VIMPAT [Suspect]
     Active Substance: LACOSAMIDE
     Indication: Trigeminal neuralgia
     Dosage: 200 MILLIGRAMS
     Route: 042
  2. VIMPAT [Suspect]
     Active Substance: LACOSAMIDE
     Indication: Off label use
  3. CARBAMAZEPINE [Suspect]
     Active Substance: CARBAMAZEPINE
     Indication: Trigeminal neuralgia
     Dosage: 200 MILLIGRAMS, UNK
     Route: 048
  4. PREDNISONE [Concomitant]
     Active Substance: PREDNISONE
     Indication: Erythema multiforme
     Dosage: 40 MILLIGRAMS PER DAY
     Route: 048

REACTIONS (2)
  - Erythema multiforme [Unknown]
  - Off label use [Unknown]
